FAERS Safety Report 10210692 (Version 1)
Quarter: 2014Q2

REPORT INFORMATION
  Report Type: Spontaneous
  Country: US (occurrence: None)
  Receive Date: 20140529
  Receipt Date: 20140529
  Transmission Date: 20141212
  Serious: Yes (Life-Threatening)
  Sender: FDA-Public Use
  Company Number: None

PATIENT
  Age: 76 Year
  Sex: Female
  Weight: 85 kg

DRUGS (11)
  1. XARELTO [Suspect]
     Indication: ATRIAL FIBRILLATION
     Dosage: ?, QD, ORAL
     Route: 048
  2. XARELTO [Suspect]
     Indication: ATRIAL FLUTTER
     Dosage: ?, QD, ORAL
     Route: 048
  3. SYMBICORT [Concomitant]
  4. PREMARIN [Concomitant]
  5. PROZAC [Concomitant]
  6. HCTZ [Concomitant]
  7. LAMOTRIGINE [Concomitant]
  8. METOPROLOL [Concomitant]
  9. ALPRAZOLAM [Concomitant]
  10. NORCO [Concomitant]
  11. LEVOTHYROXINE [Concomitant]

REACTIONS (5)
  - Acute respiratory failure [None]
  - Anaemia [None]
  - Respiratory failure [None]
  - Pulmonary alveolar haemorrhage [None]
  - Infection [None]
